FAERS Safety Report 6675639-3 (Version None)
Quarter: 2010Q2

REPORT INFORMATION
  Report Type: 
  Country: None (occurrence: None)
  Receive Date: 20100409
  Receipt Date: 20100329
  Transmission Date: 20101027
  Serious: Yes (Hospitalization)
  Sender: FDA-Public Use
  Company Number: GB-ELI_LILLY_AND_COMPANY-GB201003007906

PATIENT
  Sex: Male
  Weight: 72.4 kg

DRUGS (6)
  1. GEMCITABINE HCL [Suspect]
     Dosage: 1330 MG, DAY 1
     Route: 042
     Dates: start: 20100319
  2. CYCLOPHOSPHAMIDE [Suspect]
     Dosage: 1300 MG, DAY 1
     Route: 042
     Dates: start: 20100319
  3. VINCRISTINE [Suspect]
     Dosage: 2 MG, ON DAY 1
     Route: 042
     Dates: start: 20100319
  4. RITUXIMAB [Suspect]
     Dosage: 450 MG, DAY 1
     Route: 042
     Dates: start: 20100318
  5. OTHER PHARMA COMPANY INV DRUG [Suspect]
     Dosage: 60 MG, UNK
     Route: 048
     Dates: start: 20100306
  6. OTHER PHARMA COMPANY INV DRUG [Suspect]
     Dosage: 5 MG, UNK
     Route: 048

REACTIONS (1)
  - NEUTROPENIC SEPSIS [None]
